FAERS Safety Report 19518505 (Version 1)
Quarter: 2021Q3

REPORT INFORMATION
  Report Type: Other
  Country: US (occurrence: US)
  Receive Date: 20210712
  Receipt Date: 20210712
  Transmission Date: 20211014
  Serious: Yes (Other)
  Sender: FDA-Public Use
  Company Number: US-ROCHE-2865456

PATIENT
  Age: 90 Year
  Sex: Female

DRUGS (1)
  1. BEVACIZUMAB. [Suspect]
     Active Substance: BEVACIZUMAB
     Indication: NEOVASCULAR AGE-RELATED MACULAR DEGENERATION
     Route: 050

REACTIONS (5)
  - Endophthalmitis [Unknown]
  - Vitreous floaters [Unknown]
  - Pain [Unknown]
  - Vision blurred [Unknown]
  - Off label use [Unknown]
